FAERS Safety Report 7622639-2 (Version None)
Quarter: 2011Q3

REPORT INFORMATION
  Report Type: 
  Country: None (occurrence: None)
  Receive Date: 20110712
  Receipt Date: 20110627
  Transmission Date: 20111222
  Serious: Yes (Hospitalization)
  Sender: FDA-Public Use
  Company Number: 2011MA008126

PATIENT
  Age: 66 Year
  Sex: Female

DRUGS (8)
  1. SULFAMETHOXAZOLE [Concomitant]
  2. CYCLOSPORINE [Concomitant]
  3. PREDNISOLONE [Concomitant]
  4. RITUXIMAB [Concomitant]
  5. IMMUNE GLOBULIN NOS [Concomitant]
  6. FLUDARABINE PHOSPHATE [Suspect]
     Indication: CHRONIC LYMPHOCYTIC LEUKAEMIA
  7. TRIMETHOPRIM [Concomitant]
  8. CYCLOPHOSPHAMIDE [Concomitant]

REACTIONS (7)
  - SWELLING FACE [None]
  - BACILLARY ANGIOMATOSIS [None]
  - JOINT SWELLING [None]
  - OSTEOMYELITIS BACTERIAL [None]
  - NO THERAPEUTIC RESPONSE [None]
  - CELLULITIS [None]
  - CHOLELITHIASIS [None]
